FAERS Safety Report 8152500-9 (Version None)
Quarter: 2012Q1

REPORT INFORMATION
  Report Type: 
  Country: None (occurrence: None)
  Receive Date: 20120221
  Receipt Date: 20120215
  Transmission Date: 20120608
  Serious: Yes (Death)
  Sender: FDA-Public Use
  Company Number: DE-JNJFOC-20120208214

PATIENT
  Sex: Male

DRUGS (5)
  1. ASPIRIN [Concomitant]
     Route: 065
  2. CLOPIDOGREL [Concomitant]
     Route: 065
  3. AGGRASTAT [Concomitant]
     Route: 065
  4. REOPRO [Suspect]
     Indication: THROMBOSIS IN DEVICE
     Route: 042
     Dates: start: 20120210
  5. HEPARIN [Concomitant]
     Route: 065

REACTIONS (1)
  - PERICARDIAL EFFUSION [None]
